FAERS Safety Report 8839052 (Version 1)
Quarter: 2012Q4

REPORT INFORMATION
  Report Type: Spontaneous
  Country: US (occurrence: None)
  Receive Date: 20121011
  Receipt Date: 20121011
  Transmission Date: 20130627
  Serious: Yes (Disabling)
  Sender: FDA-Public Use
  Company Number: None

PATIENT
  Age: 59 Year
  Sex: Male
  Weight: 70.76 kg

DRUGS (1)
  1. CRESTOR [Suspect]
     Indication: CHOLESTEROL BLOOD INCREASED
     Dosage: Once daily, p.o.
     Route: 048

REACTIONS (1)
  - Diplopia [None]
